FAERS Safety Report 6728155-4 (Version None)
Quarter: 2010Q2

REPORT INFORMATION
  Report Type: 
  Country: None (occurrence: None)
  Receive Date: 20100517
  Receipt Date: 20100506
  Transmission Date: 20101027
  Serious: Yes (Other)
  Sender: FDA-Public Use
  Company Number: A0854640A

PATIENT
  Age: 60 Year
  Sex: Female

DRUGS (2)
  1. LAMICTAL [Suspect]
     Indication: EPILEPSY
     Dosage: 600MG UNKNOWN
     Route: 048
     Dates: end: 20100301
  2. LAMICTAL XR [Suspect]
     Indication: EPILEPSY
     Route: 048
     Dates: start: 20100301

REACTIONS (6)
  - DRUG INEFFECTIVE [None]
  - GRAND MAL CONVULSION [None]
  - ILL-DEFINED DISORDER [None]
  - INSOMNIA [None]
  - MEDICATION ERROR [None]
  - STRESS [None]
